FAERS Safety Report 18283073 (Version 1)
Quarter: 2020Q3

REPORT INFORMATION
  Report Type: Spontaneous
  Country: NL (occurrence: NL)
  Receive Date: 20200918
  Receipt Date: 20200918
  Transmission Date: 20201103
  Serious: Yes (Other)
  Sender: FDA-Public Use
  Company Number: NL-PFIZER INC-2020358997

PATIENT
  Age: 80 Year
  Sex: Male
  Weight: 88 kg

DRUGS (10)
  1. COLECALCIFEROL [Concomitant]
     Active Substance: CHOLECALCIFEROL
     Dosage: 10 MICROGRAM
  2. MEBEVERINE [Interacting]
     Active Substance: MEBEVERINE
     Indication: NEUROPATHY PERIPHERAL
     Dosage: FREQ:12 H;2; 200 MG
     Dates: start: 202006
  3. HYDROXOCOBALAMINE [Concomitant]
     Active Substance: HYDROXOCOBALAMIN
     Dosage: 1000 MICROGRAM
  4. MEBEVERINE [Concomitant]
     Active Substance: MEBEVERINE
     Dosage: 200 MG
  5. ACENOCOUMAROL [Concomitant]
     Active Substance: ACENOCOUMAROL
     Dosage: UNK
  6. PARACETAMOL [Concomitant]
     Active Substance: ACETAMINOPHEN
     Dosage: 500 MG
  7. MEBEVERINE [Interacting]
     Active Substance: MEBEVERINE
     Indication: ABDOMINAL DISCOMFORT
  8. LYRICA [Suspect]
     Active Substance: PREGABALIN
     Dosage: 75 MG
  9. ATORVASTATINE [ATORVASTATIN] [Concomitant]
     Active Substance: ATORVASTATIN
  10. FOLIC ACID. [Concomitant]
     Active Substance: FOLIC ACID
     Dosage: UNK

REACTIONS (2)
  - Neuropathy peripheral [Not Recovered/Not Resolved]
  - Drug interaction [Unknown]

NARRATIVE: CASE EVENT DATE: 20200620
